FAERS Safety Report 6677464-6 (Version None)
Quarter: 2010Q2

REPORT INFORMATION
  Report Type: 
  Country: None (occurrence: None)
  Receive Date: 20100412
  Receipt Date: 20100407
  Transmission Date: 20101027
  Serious: Yes (Hospitalization)
  Sender: FDA-Public Use
  Company Number: A0853932A

PATIENT
  Sex: Female

DRUGS (8)
  1. LAMICTAL CD [Suspect]
     Route: 048
     Dates: start: 20100228
  2. LAMICTAL XR [Suspect]
     Route: 048
     Dates: start: 20100301
  3. FOLIC ACID [Concomitant]
  4. NIFEDIPINE [Concomitant]
  5. ENALAPRIL MALEATE [Concomitant]
  6. CEREFOLIN WITH NAC [Concomitant]
  7. DOCOSAHEXAENOIC ACID [Concomitant]
  8. TOPAMAX [Concomitant]

REACTIONS (14)
  - ABNORMAL DREAMS [None]
  - ANGER [None]
  - BALANCE DISORDER [None]
  - CONTUSION [None]
  - CONVULSION [None]
  - FALL [None]
  - FATIGUE [None]
  - HYPERSOMNIA [None]
  - LYMPHADENOPATHY [None]
  - MALAISE [None]
  - PYREXIA [None]
  - RASH [None]
  - SWELLING FACE [None]
  - SWOLLEN TONGUE [None]
